FAERS Safety Report 7476069-7 (Version None)
Quarter: 2011Q2

REPORT INFORMATION
  Report Type: 
  Country: None (occurrence: None)
  Receive Date: 20110512
  Receipt Date: 20110509
  Transmission Date: 20111010
  Serious: Yes (Life-Threatening, Hospitalization, Disabling, Other)
  Sender: FDA-Public Use
  Company Number: IE-PFIZER INC-2011030977

PATIENT
  Age: 41 Year
  Sex: Female
  Weight: 59.5 kg

DRUGS (5)
  1. NEURONTIN [Suspect]
     Indication: CERVICAL SPINAL STENOSIS
     Dosage: 600 MG, 3X/DAY
     Route: 048
     Dates: start: 20091201, end: 20100501
  2. NEURONTIN [Suspect]
     Indication: CERVICOBRACHIAL SYNDROME
  3. NEURONTIN [Suspect]
     Indication: NEUROPATHY PERIPHERAL
  4. NEURONTIN [Suspect]
     Indication: NERVE COMPRESSION
  5. VOLTAREN [Concomitant]
     Dosage: 50 MG, 3X/DAY

REACTIONS (25)
  - BRONCHITIS [None]
  - VISION BLURRED [None]
  - DRY MOUTH [None]
  - PAIN IN EXTREMITY [None]
  - DYSPNOEA [None]
  - GALACTORRHOEA [None]
  - BRADYPHRENIA [None]
  - DRY THROAT [None]
  - CONSTIPATION [None]
  - DRY EYE [None]
  - MOOD ALTERED [None]
  - GINGIVAL RECESSION [None]
  - OEDEMA PERIPHERAL [None]
  - SOMNOLENCE [None]
  - THROAT IRRITATION [None]
  - BRONCHIECTASIS [None]
  - NIPPLE PAIN [None]
  - DEPRESSION [None]
  - JOINT SWELLING [None]
  - RAYNAUD'S PHENOMENON [None]
  - ASTHMA [None]
  - PAIN [None]
  - OBSTRUCTIVE AIRWAYS DISORDER [None]
  - TENDONITIS [None]
  - VIRAL UPPER RESPIRATORY TRACT INFECTION [None]
